FAERS Safety Report 21787562 (Version 1)
Quarter: 2022Q4

REPORT INFORMATION
  Report Type: Spontaneous
  Country: PE (occurrence: PE)
  Receive Date: 20221228
  Receipt Date: 20221228
  Transmission Date: 20230112
  Serious: Yes (Other)
  Sender: FDA-Public Use
  Company Number: PE-ORGANON-O2212PER001709

PATIENT
  Sex: Female

DRUGS (2)
  1. DIPROSPAN [Suspect]
     Active Substance: BETAMETHASONE DIPROPIONATE\BETAMETHASONE SODIUM PHOSPHATE
     Indication: Bone disorder
     Dosage: UNK
  2. DIPROSPAN [Suspect]
     Active Substance: BETAMETHASONE DIPROPIONATE\BETAMETHASONE SODIUM PHOSPHATE
     Indication: Inflammation

REACTIONS (6)
  - Diabetes mellitus [Unknown]
  - Dizziness [Unknown]
  - Hypertension [Unknown]
  - Hypersensitivity [Unknown]
  - Fluid retention [Unknown]
  - Product prescribing issue [Unknown]
